FAERS Safety Report 8543825-3 (Version None)
Quarter: 2012Q3

REPORT INFORMATION
  Report Type: 
  Country: None (occurrence: None)
  Receive Date: 20120727
  Receipt Date: 20120716
  Transmission Date: 20120928
  Serious: Yes (Hospitalization)
  Sender: FDA-Public Use
  Company Number: US-BAYER-2012-072379

PATIENT
  Age: 34 Year
  Sex: Female
  Weight: 91.156 kg

DRUGS (2)
  1. METHYLPREDNISOLONE [Concomitant]
     Dosage: 4 MG, PACK
     Dates: start: 20090513
  2. YAZ [Suspect]

REACTIONS (3)
  - PULMONARY EMBOLISM [None]
  - DEEP VEIN THROMBOSIS [None]
  - THROMBOPHLEBITIS SUPERFICIAL [None]
